FAERS Safety Report 20740514 (Version 1)
Quarter: 2022Q2

REPORT INFORMATION
  Report Type: Spontaneous
  Country: US (occurrence: None)
  Receive Date: 20220422
  Receipt Date: 20220422
  Transmission Date: 20220721
  Serious: Yes (Life-Threatening, Hospitalization, Disabling)
  Sender: FDA-Public Use
  Company Number: None

PATIENT
  Age: 57 Year
  Sex: Female
  Weight: 54 kg

DRUGS (1)
  1. LUPRON [Suspect]
     Active Substance: LEUPROLIDE ACETATE
     Indication: Endometriosis
     Dosage: FREQUENCY : MONTHLY;?
     Route: 030

REACTIONS (7)
  - Vestibular migraine [None]
  - Nervous system disorder [None]
  - Tinnitus [None]
  - Sleep disorder [None]
  - Glaucoma [None]
  - Haemorrhage [None]
  - Eye movement disorder [None]

NARRATIVE: CASE EVENT DATE: 20211124
